FAERS Safety Report 5977754-6 (Version None)
Quarter: 2008Q4

REPORT INFORMATION
  Report Type: 
  Country: None (occurrence: None)
  Receive Date: 20081203
  Receipt Date: 20081201
  Transmission Date: 20090506
  Serious: No
  Sender: FDA-Public Use
  Company Number: US-JNJFOC-20081200676

PATIENT
  Sex: Male
  Weight: 62.6 kg

DRUGS (5)
  1. FENTANYL TRANSDERMAL SYSTEM [Suspect]
     Indication: BACK PAIN
     Route: 062
  2. HYTRIN [Concomitant]
     Indication: FLUID RETENTION
     Route: 048
  3. LIBRIUM [Concomitant]
     Indication: NEUROPATHY PERIPHERAL
     Route: 048
  4. ULTRAM [Concomitant]
     Indication: PAIN
     Dosage: 50 MG TABLET AS NEEDED
     Route: 048
  5. UNKNOWN MEDICATION [Concomitant]
     Indication: BLOOD CHOLESTEROL INCREASED
     Route: 048

REACTIONS (3)
  - APPLICATION SITE PRURITUS [None]
  - FEAR [None]
  - WRONG TECHNIQUE IN DRUG USAGE PROCESS [None]
